FAERS Safety Report 11679997 (Version 1)
Quarter: 2015Q4

REPORT INFORMATION
  Report Type: Spontaneous
  Country: SE (occurrence: SE)
  Receive Date: 20151029
  Receipt Date: 20151029
  Transmission Date: 20160304
  Serious: Yes (Other)
  Sender: FDA-Public Use
  Company Number: SE-AMGEN-SWESP2015111129

PATIENT
  Age: 61 Year
  Sex: Female

DRUGS (5)
  1. OMEPRAZOLE. [Concomitant]
     Active Substance: OMEPRAZOLE
     Dosage: 20 MG, AS NECESSARY
  2. ENBREL [Suspect]
     Active Substance: ETANERCEPT
     Indication: PSORIATIC ARTHROPATHY
     Dosage: 25 MG, QWK
     Route: 065
  3. HUMIRA [Concomitant]
     Active Substance: ADALIMUMAB
     Dosage: UNK
  4. PREDNISONE                         /00044702/ [Concomitant]
     Active Substance: PREDNISONE
     Dosage: 5 MG, QWK
  5. ACETAMINOPHEN AND CODEINE [Concomitant]
     Active Substance: ACETAMINOPHEN\CODEINE PHOSPHATE
     Indication: PAIN

REACTIONS (9)
  - Renal amyloidosis [Unknown]
  - Pulmonary amyloidosis [Unknown]
  - Limb discomfort [Recovering/Resolving]
  - Burning sensation [Recovering/Resolving]
  - Nail disorder [Recovering/Resolving]
  - Erythema [Recovering/Resolving]
  - Respiratory distress [Unknown]
  - Blister [Recovering/Resolving]
  - Dermatitis psoriasiform [Recovering/Resolving]

NARRATIVE: CASE EVENT DATE: 2005
